FAERS Safety Report 23349295 (Version 1)
Quarter: 2023Q4

REPORT INFORMATION
  Report Type: Spontaneous
  Country: CN (occurrence: None)
  Receive Date: 20231229
  Receipt Date: 20231229
  Transmission Date: 20240109
  Serious: Yes (Hospitalization)
  Sender: FDA-Public Use
  Company Number: CN-ROCHE-3483006

PATIENT
  Age: 73 Year
  Sex: Female
  Weight: 65 kg

DRUGS (4)
  1. AVASTIN [Suspect]
     Active Substance: BEVACIZUMAB
     Indication: Ovarian cancer
     Route: 041
     Dates: start: 20231217, end: 20231217
  2. CARBOPLATIN [Suspect]
     Active Substance: CARBOPLATIN
     Indication: Ovarian cancer
     Route: 041
     Dates: start: 20231217, end: 20231217
  3. PACLITAXEL [Suspect]
     Active Substance: PACLITAXEL
     Indication: Ovarian cancer
     Route: 042
     Dates: start: 20231217, end: 20231217
  4. OXALIPLATIN [Concomitant]
     Active Substance: OXALIPLATIN
     Indication: Ovarian cancer
     Route: 041
     Dates: start: 20231217

REACTIONS (1)
  - Myelosuppression [Recovering/Resolving]

NARRATIVE: CASE EVENT DATE: 20231223
